FAERS Safety Report 10361021 (Version 2)
Quarter: 2014Q3

REPORT INFORMATION
  Report Type: Spontaneous
  Country: US (occurrence: US)
  Receive Date: 20140804
  Receipt Date: 20140822
  Transmission Date: 20150326
  Serious: Yes (Other)
  Sender: FDA-Public Use
  Company Number: US-JNJFOC-20140720562

PATIENT
  Age: 51 Year
  Sex: Female

DRUGS (4)
  1. HYOSCYAMINE [Concomitant]
     Active Substance: HYOSCYAMINE
     Indication: ABDOMINAL PAIN
     Dosage: 0.125 MG FOR 6
     Route: 065
     Dates: start: 20131127
  2. LEVSIN [Concomitant]
     Active Substance: HYOSCYAMINE SULFATE
     Indication: ABDOMINAL PAIN
     Dosage: 0.125 MG FOR 6
     Route: 065
     Dates: start: 20131127
  3. REMICADE [Suspect]
     Active Substance: INFLIXIMAB
     Indication: CROHN^S DISEASE
     Route: 042
     Dates: start: 20131119, end: 20140702
  4. SOLU-CORTEF [Concomitant]
     Active Substance: HYDROCORTISONE SODIUM SUCCINATE
     Indication: PREMEDICATION
     Dosage: ALL INFUSION DATES
     Route: 042

REACTIONS (3)
  - Small intestinal resection [Recovered/Resolved]
  - Infusion related reaction [Recovered/Resolved]
  - Bone pain [Recovered/Resolved]

NARRATIVE: CASE EVENT DATE: 201311
